FAERS Safety Report 13567884 (Version 1)
Quarter: 2017Q2

REPORT INFORMATION
  Report Type: Spontaneous
  Country: IE (occurrence: IE)
  Receive Date: 20170522
  Receipt Date: 20170522
  Transmission Date: 20170830
  Serious: Yes (Other)
  Sender: FDA-Public Use
  Company Number: IE-JNJFOC-20170225815

PATIENT
  Age: 76 Year
  Sex: Female

DRUGS (11)
  1. FRUSEMIDE [Concomitant]
     Active Substance: FUROSEMIDE
     Route: 065
  2. DIAZEPAM. [Concomitant]
     Active Substance: DIAZEPAM
     Route: 065
  3. LIPITOR [Concomitant]
     Active Substance: ATORVASTATIN CALCIUM
     Route: 065
  4. COVERSYL [Concomitant]
     Active Substance: PERINDOPRIL
     Route: 065
  5. ELTROXIN [Concomitant]
     Active Substance: LEVOTHYROXINE
     Route: 065
  6. LOSAMEL [Concomitant]
     Route: 065
  7. ASPIRIN. [Concomitant]
     Active Substance: ASPIRIN
     Route: 065
  8. KEFLEX [Concomitant]
     Active Substance: CEPHALEXIN
     Route: 065
  9. STELARA [Suspect]
     Active Substance: USTEKINUMAB
     Indication: PSORIASIS
     Route: 058
     Dates: start: 20160809
  10. SOLPADEINE [Concomitant]
     Dosage: 2 N/A
     Route: 065
  11. CARDICOR [Concomitant]
     Active Substance: BISOPROLOL
     Route: 049

REACTIONS (2)
  - Lower respiratory tract infection [Unknown]
  - Kidney infection [Unknown]

NARRATIVE: CASE EVENT DATE: 201702
